FAERS Safety Report 4533545-4 (Version None)
Quarter: 2004Q4

REPORT INFORMATION
  Report Type: 
  Country: None (occurrence: None)
  Receive Date: 20041221
  Receipt Date: 20041209
  Transmission Date: 20050328
  Serious: Yes (Other)
  Sender: FDA-Public Use
  Company Number: US-AMGEN-US103432

PATIENT
  Age: 44 Year
  Sex: Male

DRUGS (5)
  1. PROCRIT [Suspect]
     Indication: PRE-EXISTING DISEASE
     Route: 058
     Dates: start: 20030828, end: 20041115
  2. RIBAVIRIN [Concomitant]
     Dates: start: 20030615, end: 20040624
  3. PEGASYS [Concomitant]
     Dates: start: 20030615, end: 20040624
  4. IRON [Concomitant]
  5. MULTI-VITAMINS [Concomitant]

REACTIONS (5)
  - ANTI-ERYTHROPOIETIN ANTIBODY POSITIVE [None]
  - DRUG LEVEL INCREASED [None]
  - HAEMOGLOBIN DECREASED [None]
  - RETICULOCYTE PERCENTAGE DECREASED [None]
  - THERAPEUTIC RESPONSE DECREASED [None]
